FAERS Safety Report 23364456 (Version 2)
Quarter: 2024Q1

REPORT INFORMATION
  Report Type: Spontaneous
  Country: GB (occurrence: GB)
  Receive Date: 20240104
  Receipt Date: 20240119
  Transmission Date: 20240409
  Serious: Yes (Other)
  Sender: FDA-Public Use
  Company Number: None

PATIENT
  Sex: Male
  Weight: 102 kg

DRUGS (1)
  1. SOLIFENACIN [Suspect]
     Active Substance: SOLIFENACIN
     Indication: Pollakiuria
     Dosage: 20 MILLIGRAM, QD (TABLET 1 DAY)
     Route: 065

REACTIONS (6)
  - Malaise [Unknown]
  - Blood glucose increased [Recovering/Resolving]
  - Visual impairment [Recovering/Resolving]
  - Polydipsia [Recovered/Resolved]
  - Thirst [Recovered/Resolved]
  - Dry mouth [Recovered/Resolved]

NARRATIVE: CASE EVENT DATE: 20230901
